FAERS Safety Report 25874642 (Version 1)
Quarter: 2025Q4

REPORT INFORMATION
  Report Type: Spontaneous
  Country: US (occurrence: US)
  Receive Date: 20251002
  Receipt Date: 20251002
  Transmission Date: 20260117
  Serious: Yes (Hospitalization, Other)
  Sender: OTSUKA
  Company Number: US-MMM-Otsuka-XPRFI517

PATIENT
  Age: 52 Year
  Sex: Female
  Weight: 79 kg

DRUGS (8)
  1. REXULTI [Suspect]
     Active Substance: BREXPIPRAZOLE
     Indication: Depression
     Dosage: 3 MG
     Route: 065
  2. ATORVASTATIN [Concomitant]
     Active Substance: ATORVASTATIN
     Indication: Product used for unknown indication
     Dosage: UNK
     Route: 065
  3. bupropion, [Concomitant]
     Indication: Product used for unknown indication
     Dosage: UNK
     Route: 065
  4. clonazepam, [Concomitant]
     Indication: Product used for unknown indication
     Dosage: UNK
     Route: 065
  5. duloxetine, [Concomitant]
     Indication: Product used for unknown indication
     Dosage: UNK
     Route: 065
  6. levothyroxine, [Concomitant]
     Indication: Product used for unknown indication
     Dosage: UNK
     Route: 065
  7. METOPROLOL [Concomitant]
     Active Substance: METOPROLOL
     Indication: Product used for unknown indication
     Dosage: UNK
     Route: 065
  8. SEMAGLUTIDE [Concomitant]
     Active Substance: SEMAGLUTIDE
     Indication: Product used for unknown indication
     Dosage: UNK
     Route: 065

REACTIONS (2)
  - Diverticulitis [Unknown]
  - Product dose omission issue [Unknown]

NARRATIVE: CASE EVENT DATE: 20250925
